FAERS Safety Report 14500220 (Version 1)
Quarter: 2018Q1

REPORT INFORMATION
  Report Type: Not Available
  Country: US (occurrence: US)
  Receive Date: 20180207
  Receipt Date: 20180207
  Transmission Date: 20180509
  Serious: No
  Sender: FDA-Public Use
  Company Number: US-FOUNDATIONCONSUMERHC-2017-US-015497

PATIENT
  Age: 18 Year
  Sex: Female
  Weight: 66.23 kg

DRUGS (2)
  1. PLAN B ONE-STEP [Suspect]
     Active Substance: LEVONORGESTREL
     Dosage: 1 TAB PO
     Route: 048
     Dates: start: 20171223, end: 20171223
  2. UNSPECIFIED INHALER [Concomitant]
     Active Substance: UNSPECIFIED INGREDIENT

REACTIONS (6)
  - Vaginal discharge [Unknown]
  - Abdominal distension [Unknown]
  - Menstrual disorder [Unknown]
  - Dysmenorrhoea [Unknown]
  - Pyrexia [Unknown]
  - Abdominal discomfort [Unknown]

NARRATIVE: CASE EVENT DATE: 20171223
